FAERS Safety Report 7607641-9 (Version None)
Quarter: 2011Q3

REPORT INFORMATION
  Report Type: 
  Country: None (occurrence: None)
  Receive Date: 20110713
  Receipt Date: 20110324
  Transmission Date: 20111222
  Serious: Yes (Other)
  Sender: FDA-Public Use
  Company Number: PHHY2010KR14412

PATIENT
  Sex: Male

DRUGS (1)
  1. SANDOSTATIN LAR [Suspect]
     Indication: ACROMEGALY
     Dosage: 20 MG, UNK
     Route: 030
     Dates: start: 20090527

REACTIONS (6)
  - GAIT DISTURBANCE [None]
  - BENIGN PROSTATIC HYPERPLASIA [None]
  - FALL [None]
  - POLLAKIURIA [None]
  - URINARY RETENTION [None]
  - ARTHRALGIA [None]
